FAERS Safety Report 16415252 (Version 1)
Quarter: 2019Q2

REPORT INFORMATION
  Report Type: Spontaneous
  Country: US (occurrence: US)
  Receive Date: 20190611
  Receipt Date: 20190611
  Transmission Date: 20190711
  Serious: Yes (Hospitalization)
  Sender: FDA-Public Use
  Company Number: US-PHARMALEX-2068067

PATIENT
  Sex: Female

DRUGS (1)
  1. EXPAREL [Suspect]
     Active Substance: BUPIVACAINE
     Indication: NERVE BLOCK

REACTIONS (8)
  - Breast reconstruction [Unknown]
  - Infection [Unknown]
  - Necrosis [Unknown]
  - Visceral congestion [Unknown]
  - Postoperative wound infection [Unknown]
  - Haematoma [Unknown]
  - Urinary tract infection [Unknown]
  - Acute kidney injury [Unknown]
